FAERS Safety Report 7070532-9 (Version None)
Quarter: 2010Q4

REPORT INFORMATION
  Report Type: 
  Country: None (occurrence: None)
  Receive Date: 20101029
  Receipt Date: 20101015
  Transmission Date: 20110411
  Serious: Yes (Other)
  Sender: FDA-Public Use
  Company Number: TR-RANBAXY-2010RR-37917

PATIENT
  Age: 37 Year
  Sex: Male

DRUGS (3)
  1. VALACYCLOVIR [Suspect]
     Dosage: 4.5 G, UNK
  2. TACROLIMUS [Suspect]
     Dosage: 2 MG, UNK
  3. MYCOPHENOLIC ACID [Suspect]
     Dosage: 720 MG, UNK

REACTIONS (2)
  - LEUKOPENIA [None]
  - NEUTROPENIA [None]
